FAERS Safety Report 20851618 (Version 1)
Quarter: 2022Q2

REPORT INFORMATION
  Report Type: Spontaneous
  Country: US (occurrence: US)
  Receive Date: 20220520
  Receipt Date: 20220520
  Transmission Date: 20220721
  Serious: Yes (Death, Other)
  Sender: FDA-Public Use
  Company Number: US-NOVARTISPH-NVSC2022US114877

PATIENT
  Sex: Male

DRUGS (1)
  1. METFORMIN [Suspect]
     Active Substance: METFORMIN HYDROCHLORIDE
     Indication: Diabetes mellitus
     Dosage: 5 DOSAGE FORM, QD
     Route: 048

REACTIONS (2)
  - Death [Fatal]
  - Nephropathy toxic [Not Recovered/Not Resolved]

NARRATIVE: CASE EVENT DATE: 20150101
